FAERS Safety Report 5185315-4 (Version None)
Quarter: 2006Q4

REPORT INFORMATION
  Report Type: 
  Country: None (occurrence: None)
  Receive Date: 20061220
  Receipt Date: 20041119
  Transmission Date: 20070319
  Serious: Yes (Hospitalization)
  Sender: FDA-Public Use
  Company Number: PHHO2004DE16707

PATIENT
  Age: 84 Year
  Sex: Female
  Weight: 96 kg

DRUGS (6)
  1. SIMULECT [Suspect]
     Indication: CORNEAL OPERATION
     Dosage: 20 MG, ONCE/SINGLE
     Route: 042
     Dates: start: 20040507, end: 20040507
  2. SIMULECT [Suspect]
     Dosage: 20 MG, DAY 4
     Route: 042
     Dates: start: 20040511, end: 20040511
  3. NEORAL [Suspect]
     Indication: CORNEAL OPERATION
     Dosage: 250 MG / DAY
     Route: 048
     Dates: start: 20040507, end: 20040524
  4. TORSEMIDE [Concomitant]
  5. ENALAPRIL MALEATE [Concomitant]
  6. METOPROLOL SUCCINATE [Concomitant]

REACTIONS (2)
  - DRUG INEFFECTIVE [None]
  - HYPERTENSION [None]
